FAERS Safety Report 5583665-0 (Version None)
Quarter: 2008Q1

REPORT INFORMATION
  Report Type: 
  Country: None (occurrence: None)
  Receive Date: 20080102
  Receipt Date: 20071220
  Transmission Date: 20080703
  Serious: Yes (Hospitalization)
  Sender: FDA-Public Use
  Company Number: WAES 0712USA08621

PATIENT
  Age: 77 Year
  Sex: Male

DRUGS (3)
  1. DECADRON [Suspect]
     Dosage: /Q8H/PO, /Q12H/PO
     Route: 048
     Dates: start: 20071028
  2. TEMODAR [Suspect]
     Indication: GLIOBLASTOMA MULTIFORME
     Dates: start: 20071008, end: 20071029
  3. DILANTIN [Suspect]
     Dosage: 200 MG/BID/

REACTIONS (3)
  - COMPLEX PARTIAL SEIZURES [None]
  - CONFUSIONAL STATE [None]
  - DRUG LEVEL BELOW THERAPEUTIC [None]
